FAERS Safety Report 12006864 (Version 4)
Quarter: 2016Q4

REPORT INFORMATION
  Report Type: Spontaneous
  Country: US (occurrence: US)
  Receive Date: 20160204
  Receipt Date: 20161028
  Transmission Date: 20170206
  Serious: Yes (Other)
  Sender: FDA-Public Use
  Company Number: US-BAYER-2016-021016

PATIENT
  Sex: Male
  Weight: 79.82 kg

DRUGS (6)
  1. AVELOX [Suspect]
     Active Substance: MOXIFLOXACIN HYDROCHLORIDE
     Dosage: 400 MG, UNK
     Dates: start: 20130223
  2. AVELOX [Suspect]
     Active Substance: MOXIFLOXACIN HYDROCHLORIDE
     Dosage: 400 MG, UNK
     Dates: start: 20130116
  3. AVELOX [Suspect]
     Active Substance: MOXIFLOXACIN HYDROCHLORIDE
     Dosage: 400 MG, UNK
     Dates: start: 20130224
  4. CIPRO [Suspect]
     Active Substance: CIPROFLOXACIN HYDROCHLORIDE
  5. LEVAQUIN [Suspect]
     Active Substance: LEVOFLOXACIN
  6. AVELOX [Suspect]
     Active Substance: MOXIFLOXACIN HYDROCHLORIDE
     Dosage: 400 MG, UNK
     Dates: start: 20100330

REACTIONS (11)
  - Peripheral swelling [None]
  - Nervous system disorder [None]
  - Mental disorder [None]
  - Cardiovascular disorder [None]
  - Musculoskeletal injury [None]
  - Skin injury [None]
  - Pain [None]
  - Peripheral nerve injury [None]
  - Dizziness [None]
  - Neuropathy peripheral [Not Recovered/Not Resolved]
  - Headache [None]
